FAERS Safety Report 12447213 (Version 1)
Quarter: 2016Q2

REPORT INFORMATION
  Report Type: Spontaneous
  Country: JP (occurrence: JP)
  Receive Date: 20160608
  Receipt Date: 20160608
  Transmission Date: 20160815
  Serious: Yes (Other)
  Sender: FDA-Public Use
  Company Number: JP-MYLANLABS-2016M1023589

PATIENT

DRUGS (2)
  1. FUROSEMIDE. [Suspect]
     Active Substance: FUROSEMIDE
     Indication: PRODUCT USED FOR UNKNOWN INDICATION
     Dosage: 10 MG, UNK
     Route: 040
  2. CISPLATIN. [Concomitant]
     Active Substance: CISPLATIN
     Indication: UTERINE CANCER
     Dosage: 40 MG/M2 AND AND 3 L OF INFUSION SOLUTION ADMINISTERED AS AN INTRAVENOUS DRIP INFUSION
     Route: 041

REACTIONS (1)
  - Ureteric rupture [Unknown]
